FAERS Safety Report 15056799 (Version 1)
Quarter: 2018Q2

REPORT INFORMATION
  Report Type: Spontaneous
  Country: SE (occurrence: SE)
  Receive Date: 20180604
  Receipt Date: 20180604
  Transmission Date: 20180711
  Serious: Yes (Disabling, Other)
  Sender: FDA-Public Use
  Company Number: None

PATIENT
  Age: 23 Year
  Weight: 68 kg

DRUGS (1)
  1. QUETIAPIN BIQUETAN [Suspect]
     Active Substance: QUETIAPINE
     Indication: SCHIZOPHRENIA
     Dosage: ?          QUANTITY:100 DF DOSAGE FORM;?
     Route: 048

REACTIONS (13)
  - Glossitis [None]
  - Eye swelling [None]
  - Gingival discomfort [None]
  - Nasal congestion [None]
  - Viral infection [None]
  - Bacterial infection [None]
  - Pruritus [None]
  - Fatigue [None]
  - Hyperhidrosis [None]
  - Swelling face [None]
  - Ocular hyperaemia [None]
  - Hypersensitivity [None]
  - Anal pruritus [None]

NARRATIVE: CASE EVENT DATE: 20171101
